FAERS Safety Report 11196530 (Version 1)
Quarter: 2015Q2

REPORT INFORMATION
  Report Type: Spontaneous
  Country: US (occurrence: None)
  Receive Date: 20150616
  Receipt Date: 20150616
  Transmission Date: 20150821
  Serious: Yes (Hospitalization, Other)
  Sender: FDA-Public Use
  Company Number: None

PATIENT
  Age: 68 Year
  Sex: Male
  Weight: 96.16 kg

DRUGS (10)
  1. SAW PALMENTO [Concomitant]
  2. KLONOPIN [Concomitant]
     Active Substance: CLONAZEPAM
  3. CAL [Concomitant]
  4. MAG [Concomitant]
  5. ACIPHEX [Concomitant]
     Active Substance: RABEPRAZOLE SODIUM
  6. RAPID FLOW CIALIS [Concomitant]
  7. SUBOXONE [Suspect]
     Active Substance: BUPRENORPHINE HYDROCHLORIDE\NALOXONE HYDROCHLORIDE
     Indication: DRUG DETOXIFICATION
     Dosage: 8 MG FILM, TAKEN UNDER THE TONGUE
     Route: 060
  8. VITAMIN C [Concomitant]
     Active Substance: ASCORBIC ACID
  9. VITAMIN D [Concomitant]
     Active Substance: CHOLECALCIFEROL
  10. ZANTAC [Concomitant]
     Active Substance: RANITIDINE HYDROCHLORIDE

REACTIONS (5)
  - Abdominal pain upper [None]
  - Dizziness [None]
  - Withdrawal syndrome [None]
  - Quality of life decreased [None]
  - Constipation [None]

NARRATIVE: CASE EVENT DATE: 20150413
